FAERS Safety Report 4412620-9 (Version None)
Quarter: 2004Q2

REPORT INFORMATION
  Report Type: 
  Country: None (occurrence: None)
  Receive Date: 20040630
  Receipt Date: 20040302
  Transmission Date: 20050107
  Serious: No
  Sender: FDA-Public Use
  Company Number: 04P-163-251895-00

PATIENT
  Age: 48 Year
  Sex: Female
  Weight: 75.7507 kg

DRUGS (8)
  1. HUMIRA [Suspect]
     Indication: RHEUMATOID ARTHRITIS
     Dosage: 40 MG, 1 IN 2 WK, SUBCUTANEOUS
     Route: 058
     Dates: start: 20031112
  2. METHOTREXATE [Concomitant]
  3. HYDROXYCHLOROQUINE PHOSPHATE [Concomitant]
  4. FOLIC ACID [Concomitant]
  5. CALCIUM [Concomitant]
  6. FERROUS SULFATE TAB [Concomitant]
  7. THERAGRAN [Concomitant]
  8. RANITIDINE [Concomitant]

REACTIONS (1)
  - DRUG INEFFECTIVE [None]
